FAERS Safety Report 6331622-9 (Version None)
Quarter: 2009Q3

REPORT INFORMATION
  Report Type: 
  Country: None (occurrence: None)
  Receive Date: 20090827
  Receipt Date: 20090819
  Transmission Date: 20100115
  Serious: Yes (Other)
  Sender: FDA-Public Use
  Company Number: PHEH2009US09635

PATIENT
  Age: 50 Year
  Sex: Male

DRUGS (2)
  1. ZELNORM [Suspect]
     Indication: IMPAIRED GASTRIC EMPTYING
     Dosage: 6 MG, BID
     Route: 048
     Dates: start: 20090805
  2. PROGRAF [Concomitant]
     Dosage: UNK

REACTIONS (1)
  - WHITE BLOOD CELL COUNT DECREASED [None]
